FAERS Safety Report 8254806-1 (Version None)
Quarter: 2012Q2

REPORT INFORMATION
  Report Type: 
  Country: None (occurrence: None)
  Receive Date: 20120403
  Receipt Date: 20120329
  Transmission Date: 20120825
  Serious: Yes (Death, Hospitalization)
  Sender: FDA-Public Use
  Company Number: PHBS2005DK02897

PATIENT
  Sex: Male
  Weight: 90 kg

DRUGS (7)
  1. ZOMETA [Suspect]
     Indication: PROSTATE CANCER
     Dosage: 4 MG, QMO
     Dates: start: 20020910
  2. DURAGESIC-100 [Concomitant]
     Dosage: 75 MG/DAY
  3. TODOLAC [Concomitant]
     Dosage: UNK UKN, UNK
     Dates: start: 20020820
  4. ZOLADEX [Concomitant]
     Dosage: 10.8 MG/DAY
  5. ZOMETA [Suspect]
     Dosage: 4 MG, QMO
     Dates: start: 20040917
  6. GABAPENTIN [Concomitant]
     Dosage: UNK UKN, UNK
     Dates: start: 20020628, end: 20030513
  7. OXYCONTIN [Concomitant]
     Dosage: 80 MG, UNK
     Dates: start: 20020820

REACTIONS (6)
  - ABDOMINAL NEOPLASM [None]
  - URINARY RETENTION [None]
  - OSTEONECROSIS OF JAW [None]
  - BACTERIAL INFECTION [None]
  - RENAL IMPAIRMENT [None]
  - CONSTIPATION [None]
